FAERS Safety Report 8505712-6 (Version None)
Quarter: 2012Q3

REPORT INFORMATION
  Report Type: 
  Country: None (occurrence: None)
  Receive Date: 20120706
  Receipt Date: 20120706
  Transmission Date: 20120928
  Serious: Yes (Life-Threatening, Hospitalization)
  Sender: FDA-Public Use
  Company Number: None

PATIENT
  Age: 19 Year
  Sex: Male
  Weight: 72 kg

DRUGS (1)
  1. BACTRIM [Suspect]
     Indication: INFECTED DERMAL CYST
     Dosage: PO
     Route: 048
     Dates: start: 20120604, end: 20120609

REACTIONS (2)
  - PLATELET COUNT DECREASED [None]
  - RASH [None]
